FAERS Safety Report 8011303-6 (Version None)
Quarter: 2011Q4

REPORT INFORMATION
  Report Type: 
  Country: None (occurrence: None)
  Receive Date: 20111228
  Receipt Date: 20111223
  Transmission Date: 20120403
  Serious: Yes (Death)
  Sender: FDA-Public Use
  Company Number: US-CELGENEUS-163-21880-11123205

PATIENT
  Sex: Male

DRUGS (10)
  1. VALACYCLOVIR [Concomitant]
     Dosage: 500 MILLIGRAM
     Route: 065
  2. DILANTIN [Concomitant]
     Dosage: 30 MILLIGRAM
     Route: 065
  3. XANAX [Concomitant]
     Dosage: 1 MILLIGRAM
     Route: 065
  4. REVLIMID [Suspect]
     Dosage: 25 MILLIGRAM
     Route: 048
     Dates: start: 20111201
  5. EFFEXOR [Concomitant]
     Dosage: 50 MILLIGRAM
     Route: 065
  6. ATIVAN [Concomitant]
     Dosage: 1 MILLIGRAM
     Route: 065
  7. DILAUDID [Concomitant]
     Dosage: 2 MILLIGRAM
     Route: 065
  8. STOOL SOFTENER [Concomitant]
     Dosage: 240 MILLIGRAM
     Route: 065
  9. DIFLUCAN [Concomitant]
     Dosage: 200 MILLIGRAM
     Route: 065
  10. PHENERGAN [Concomitant]
     Dosage: 25 MILLIGRAM
     Route: 065

REACTIONS (1)
  - DEATH [None]
